FAERS Safety Report 11324679 (Version 2)
Quarter: 2015Q3

REPORT INFORMATION
  Report Type: Spontaneous
  Country: US (occurrence: US)
  Receive Date: 20150730
  Receipt Date: 20150731
  Transmission Date: 20151125
  Serious: No
  Sender: FDA-Public Use
  Company Number: US-PFIZER INC-2015254769

PATIENT
  Sex: Female

DRUGS (1)
  1. DUAVEE [Suspect]
     Active Substance: BAZEDOXIFENE ACETATE\ESTROGENS, CONJUGATED
     Indication: AUTONOMIC NERVOUS SYSTEM IMBALANCE
     Dosage: UNK

REACTIONS (2)
  - Drug ineffective [Unknown]
  - Off label use [Unknown]
